FAERS Safety Report 17644354 (Version 3)
Quarter: 2020Q2

REPORT INFORMATION
  Report Type: Spontaneous
  Country: US (occurrence: US)
  Receive Date: 20200408
  Receipt Date: 20200518
  Transmission Date: 20200713
  Serious: Yes (Other)
  Sender: FDA-Public Use
  Company Number: US-PFIZER INC-2020144877

PATIENT
  Age: 59 Year
  Sex: Female

DRUGS (3)
  1. NITROGLYCERIN. [Concomitant]
     Active Substance: NITROGLYCERIN
     Dosage: UNK
     Route: 060
  2. XELJANZ [Suspect]
     Active Substance: TOFACITINIB CITRATE
     Dosage: 5 MG, 2X/DAY
     Route: 048
     Dates: start: 202003
  3. XELJANZ [Suspect]
     Active Substance: TOFACITINIB CITRATE
     Indication: RHEUMATOID ARTHRITIS
     Dosage: 5 MG, 2X/DAY
     Route: 048
     Dates: start: 20200317

REACTIONS (8)
  - Fear of disease [Unknown]
  - Chest pain [Unknown]
  - Dyspnoea [Recovered/Resolved]
  - Thrombosis [Unknown]
  - Pain in extremity [Unknown]
  - Peripheral swelling [Unknown]
  - Product dose omission [Unknown]
  - Muscle spasms [Not Recovered/Not Resolved]

NARRATIVE: CASE EVENT DATE: 20200421
